FAERS Safety Report 6337436-8 (Version None)
Quarter: 2009Q3

REPORT INFORMATION
  Report Type: 
  Country: None (occurrence: None)
  Receive Date: 20090901
  Receipt Date: 20090901
  Transmission Date: 20100115
  Serious: Yes (Hospitalization)
  Sender: FDA-Public Use
  Company Number: None

PATIENT
  Age: 54 Year
  Sex: Female
  Weight: 96 kg

DRUGS (1)
  1. VINORELBINE [Suspect]
     Indication: BREAST CANCER METASTATIC
     Dosage: 20MG/M2 WEEKLY IV BOLUS
     Route: 040
     Dates: start: 20090731, end: 20090807

REACTIONS (2)
  - HEART RATE INCREASED [None]
  - HYPERTENSION [None]
